FAERS Safety Report 8490615-6 (Version None)
Quarter: 2012Q3

REPORT INFORMATION
  Report Type: 
  Country: None (occurrence: None)
  Receive Date: 20120705
  Receipt Date: 20120627
  Transmission Date: 20120928
  Serious: Yes (Hospitalization)
  Sender: FDA-Public Use
  Company Number: BR-ABBOTT-12P-020-0951077-00

PATIENT
  Sex: Female
  Weight: 53 kg

DRUGS (3)
  1. KALETRA [Suspect]
     Indication: HIV INFECTION
     Dosage: 200/50 MG
     Route: 048
     Dates: start: 20060101
  2. UNSPECIFIED VITAMIN [Concomitant]
     Indication: WEIGHT INCREASED
     Route: 048
     Dates: start: 20120201
  3. FERROUS SULFATE TAB [Concomitant]
     Indication: ANAEMIA
     Route: 048
     Dates: start: 20120201

REACTIONS (10)
  - FATIGUE [None]
  - LAZINESS [None]
  - VOMITING [None]
  - OCULAR ICTERUS [None]
  - SOMNOLENCE [None]
  - ASTHENIA [None]
  - WEIGHT DECREASED [None]
  - ANAEMIA [None]
  - DENGUE FEVER [None]
  - NAUSEA [None]
